FAERS Safety Report 4424570-2 (Version None)
Quarter: 2004Q3

REPORT INFORMATION
  Report Type: 
  Country: None (occurrence: None)
  Receive Date: 20040719
  Receipt Date: 20031110
  Transmission Date: 20050211
  Serious: Yes (Hospitalization)
  Sender: FDA-Public Use
  Company Number: 185572

PATIENT
  Age: 53 Year
  Sex: Female
  Weight: 108.8633 kg

DRUGS (5)
  1. AVONEX [Suspect]
     Indication: MULTIPLE SCLEROSIS
     Dosage: 30 MCG QW IM
     Route: 030
  2. AVONEX [Suspect]
     Indication: MULTIPLE SCLEROSIS
  3. KLONOPIN [Concomitant]
  4. VIOXX [Concomitant]
  5. XANAX [Concomitant]

REACTIONS (2)
  - MULTIPLE SCLEROSIS RELAPSE [None]
  - STRESS SYMPTOMS [None]
